FAERS Safety Report 12254051 (Version 3)
Quarter: 2016Q4

REPORT INFORMATION
  Report Type: Report from Study
  Country: JP (occurrence: JP)
  Receive Date: 20160411
  Receipt Date: 20161220
  Transmission Date: 20170207
  Serious: Yes (Death, Life-Threatening, Hospitalization)
  Sender: FDA-Public Use
  Company Number: JP-SA-2015SA131733

PATIENT
  Age: 25 Year
  Sex: Female

DRUGS (122)
  1. DEXART [Concomitant]
     Active Substance: DEXAMETHASONE SODIUM PHOSPHATE
     Indication: ACUTE LYMPHOCYTIC LEUKAEMIA RECURRENT
     Route: 042
     Dates: start: 20150902, end: 20150906
  2. CARBOHYDRATES NOS/SODIUM LACTATE/SODIUM CHLORIDE/POTASSIUM CHLORIDE [Concomitant]
     Indication: ACUTE LYMPHOCYTIC LEUKAEMIA RECURRENT
     Route: 042
     Dates: start: 20150814, end: 20150819
  3. ALDACTONE-A [Concomitant]
     Active Substance: SPIRONOLACTONE
     Indication: ACUTE LYMPHOCYTIC LEUKAEMIA RECURRENT
     Route: 048
     Dates: start: 20150901, end: 20150913
  4. VANCOMYCIN [Concomitant]
     Active Substance: VANCOMYCIN
     Indication: ACUTE LYMPHOCYTIC LEUKAEMIA RECURRENT
     Route: 041
     Dates: start: 20150902, end: 20150903
  5. LUNESTA [Concomitant]
     Active Substance: ESZOPICLONE
  6. MOHRUS [Concomitant]
     Active Substance: KETOPROFEN
  7. VANCOMYCIN HYDROCHLORIDE. [Concomitant]
     Active Substance: VANCOMYCIN HYDROCHLORIDE
     Dosage: POWDER
  8. FENTOS [Concomitant]
     Active Substance: FENTANYL
  9. CALCICOL [Concomitant]
     Active Substance: CALCIUM GLUCONATE
  10. LASIX [Suspect]
     Active Substance: FUROSEMIDE
     Indication: URINE OUTPUT
     Route: 042
     Dates: start: 20150815, end: 20150818
  11. LASIX [Suspect]
     Active Substance: FUROSEMIDE
     Indication: URINE OUTPUT
     Route: 042
     Dates: start: 20150905, end: 20150912
  12. METHYLPREDNISOLONE. [Suspect]
     Active Substance: METHYLPREDNISOLONE
     Indication: LUNG INFILTRATION
     Route: 042
     Dates: start: 20150901, end: 20150903
  13. ALBUMIN TANNATE [Concomitant]
     Active Substance: ALBUMIN BOVINE\TANNIC ACID
     Indication: ACUTE LYMPHOCYTIC LEUKAEMIA RECURRENT
     Dosage: POWDER
     Route: 048
     Dates: start: 20150824, end: 20150828
  14. SODIUM CHLORIDE. [Concomitant]
     Active Substance: SODIUM CHLORIDE
     Indication: ACUTE LYMPHOCYTIC LEUKAEMIA RECURRENT
     Route: 042
     Dates: start: 20150820, end: 20150917
  15. SODIUM CHLORIDE. [Concomitant]
     Active Substance: SODIUM CHLORIDE
     Indication: ACUTE LYMPHOCYTIC LEUKAEMIA RECURRENT
     Route: 042
     Dates: start: 20150902, end: 20150906
  16. MINOCYCLINE [Concomitant]
     Active Substance: MINOCYCLINE\MINOCYCLINE HYDROCHLORIDE
     Indication: ACUTE LYMPHOCYTIC LEUKAEMIA RECURRENT
     Route: 041
     Dates: start: 20150907, end: 20150920
  17. NOREPINEPHRINE [Concomitant]
     Active Substance: NOREPINEPHRINE\NOREPINEPHRINE BITARTRATE
     Indication: ACUTE LYMPHOCYTIC LEUKAEMIA RECURRENT
     Route: 042
     Dates: start: 20150907, end: 20150908
  18. HUSTAZOL [Concomitant]
     Active Substance: CLOPERASTINE
     Dosage: HUSTAZOL SUGAR-COATED TABLET
  19. CARBOCISTEINE [Concomitant]
     Active Substance: CARBOCYSTEINE
  20. SAMSCA [Concomitant]
     Active Substance: TOLVAPTAN
  21. FIRSTCIN [Concomitant]
     Active Substance: CEFOZOPRAN HYDROCHLORIDE
     Route: 042
  22. PANTOL [Concomitant]
     Active Substance: DEXPANTHENOL
  23. PREDONINE [Concomitant]
     Active Substance: PREDNISOLONE\PREDNISOLONE ACETATE\PREDNISOLONE SODIUM SUCCINATE
  24. ZOSYN [Suspect]
     Active Substance: PIPERACILLIN SODIUM\TAZOBACTAM SODIUM
     Route: 042
     Dates: start: 20150907, end: 20150907
  25. METHYLPREDNISOLONE. [Suspect]
     Active Substance: METHYLPREDNISOLONE
     Indication: LUNG INFILTRATION
     Route: 042
     Dates: start: 20150920, end: 20150922
  26. DIFLUCAN [Concomitant]
     Active Substance: FLUCONAZOLE
     Indication: ACUTE LYMPHOCYTIC LEUKAEMIA RECURRENT
     Route: 048
     Dates: end: 20150828
  27. BROTIZOLAM [Concomitant]
     Active Substance: BROTIZOLAM
     Indication: ACUTE LYMPHOCYTIC LEUKAEMIA RECURRENT
     Dosage: DOSE: 5 DAYS PER WEEK
     Route: 048
     Dates: end: 20150920
  28. BIO-THREE [Concomitant]
     Active Substance: HERBALS
     Indication: ACUTE LYMPHOCYTIC LEUKAEMIA RECURRENT
     Route: 048
     Dates: start: 20150824, end: 20150828
  29. VENETLIN [Concomitant]
     Active Substance: ALBUTEROL SULFATE
     Indication: ACUTE LYMPHOCYTIC LEUKAEMIA RECURRENT
     Dosage: FREQUENCY: Q4W
     Route: 055
     Dates: start: 20150831, end: 20150929
  30. SODIUM CHLORIDE. [Concomitant]
     Active Substance: SODIUM CHLORIDE
     Indication: ACUTE LYMPHOCYTIC LEUKAEMIA RECURRENT
     Dosage: 5 DAYS PER WEEK
     Route: 042
     Dates: start: 20150907, end: 20151012
  31. SODIUM CHLORIDE. [Concomitant]
     Active Substance: SODIUM CHLORIDE
     Indication: ACUTE LYMPHOCYTIC LEUKAEMIA RECURRENT
     Dosage: 10-100
     Route: 042
     Dates: end: 20151012
  32. SAXIZON [Concomitant]
     Active Substance: HYDROCORTISONE SODIUM SUCCINATE
     Indication: ACUTE LYMPHOCYTIC LEUKAEMIA RECURRENT
     Dosage: 2 DAYS PER WEEK
     Route: 042
     Dates: start: 20150819, end: 20150831
  33. VANCOMYCIN [Concomitant]
     Active Substance: VANCOMYCIN
     Indication: ACUTE LYMPHOCYTIC LEUKAEMIA RECURRENT
     Route: 041
     Dates: start: 20150907, end: 20150907
  34. BUSCOPAN [Concomitant]
     Active Substance: BUTYLSCOPOLAMINE BROMIDE
  35. CALONAL [Concomitant]
     Active Substance: ACETAMINOPHEN
  36. LEUPLIN [Concomitant]
     Active Substance: LEUPROLIDE ACETATE
  37. EVOLTRA [Suspect]
     Active Substance: CLOFARABINE
     Indication: ACUTE LYMPHOCYTIC LEUKAEMIA RECURRENT
     Route: 042
     Dates: start: 20150814, end: 20150818
  38. LASIX [Suspect]
     Active Substance: FUROSEMIDE
     Indication: OEDEMA
     Route: 042
     Dates: start: 20150829, end: 20150831
  39. LASIX [Suspect]
     Active Substance: FUROSEMIDE
     Indication: OEDEMA
     Route: 042
     Dates: start: 20150901, end: 20150920
  40. CALONAL [Concomitant]
     Active Substance: ACETAMINOPHEN
     Indication: ACUTE LYMPHOCYTIC LEUKAEMIA RECURRENT
     Route: 048
     Dates: start: 20150820, end: 20150914
  41. VFEND [Concomitant]
     Active Substance: VORICONAZOLE
     Indication: ACUTE LYMPHOCYTIC LEUKAEMIA RECURRENT
     Route: 048
     Dates: start: 20150829, end: 20150909
  42. SODIUM CHLORIDE. [Concomitant]
     Active Substance: SODIUM CHLORIDE
     Indication: ACUTE LYMPHOCYTIC LEUKAEMIA RECURRENT
     Route: 042
     Dates: start: 20150907, end: 20150907
  43. GLUCOSE [Concomitant]
     Active Substance: DEXTROSE
     Indication: ACUTE LYMPHOCYTIC LEUKAEMIA RECURRENT
     Route: 042
     Dates: start: 20150907, end: 20150911
  44. RASURITEK [Concomitant]
     Active Substance: RASBURICASE
     Indication: ACUTE LYMPHOCYTIC LEUKAEMIA RECURRENT
     Route: 042
     Dates: start: 20150901, end: 20150901
  45. FILGRASTIM [Concomitant]
     Active Substance: FILGRASTIM
     Indication: ACUTE LYMPHOCYTIC LEUKAEMIA RECURRENT
     Route: 042
     Dates: start: 20150907, end: 20150917
  46. DIAMOX SEQUELS [Concomitant]
     Active Substance: ACETAZOLAMIDE
     Indication: ACUTE LYMPHOCYTIC LEUKAEMIA RECURRENT
     Route: 042
     Dates: start: 20150826, end: 20150826
  47. POLARAMINE [Concomitant]
     Active Substance: DEXCHLORPHENIRAMINE MALEATE
     Indication: ACUTE LYMPHOCYTIC LEUKAEMIA RECURRENT
     Route: 042
     Dates: start: 20150907, end: 20150907
  48. CODEINE PHOSPHATE [Concomitant]
     Active Substance: CODEINE PHOSPHATE
     Dosage: CODEINE PHOSPHATE POWDER 1%
  49. NOVAMIN [Concomitant]
     Active Substance: PROCHLORPERAZINE MALEATE
  50. ABSTRAL [Concomitant]
     Active Substance: FENTANYL CITRATE
  51. MYONAL [Concomitant]
     Active Substance: EPERISONE HYDROCHLORIDE
  52. ZYPREXA [Concomitant]
     Active Substance: OLANZAPINE
  53. FUROSEMIDE. [Concomitant]
     Active Substance: FUROSEMIDE
  54. ATARAX-P [Concomitant]
     Active Substance: HYDROXYZINE HYDROCHLORIDE
     Route: 051
  55. PRIMPERAN [Concomitant]
     Active Substance: METOCLOPRAMIDE HYDROCHLORIDE
  56. NOVOLIN R [Concomitant]
     Active Substance: INSULIN HUMAN
  57. LASIX [Suspect]
     Active Substance: FUROSEMIDE
     Indication: OEDEMA
     Route: 042
     Dates: start: 20150815, end: 20150818
  58. LASIX [Suspect]
     Active Substance: FUROSEMIDE
     Indication: URINE OUTPUT
     Route: 042
     Dates: start: 20150829, end: 20150831
  59. LASIX [Suspect]
     Active Substance: FUROSEMIDE
     Indication: OEDEMA
     Dosage: DOSE: 10-20 MG/ BODY
     Route: 042
     Dates: start: 20150925, end: 20151006
  60. NEXIUM [Concomitant]
     Active Substance: ESOMEPRAZOLE MAGNESIUM
     Indication: ACUTE LYMPHOCYTIC LEUKAEMIA RECURRENT
     Route: 048
     Dates: end: 20150930
  61. FEBURIC [Concomitant]
     Active Substance: FEBUXOSTAT
     Indication: ACUTE LYMPHOCYTIC LEUKAEMIA RECURRENT
     Dosage: DOSE: 20
     Route: 048
     Dates: start: 20150831, end: 20150907
  62. URSODEOXYCHOLIC ACID [Concomitant]
     Active Substance: URSODIOL
     Indication: ACUTE LYMPHOCYTIC LEUKAEMIA RECURRENT
     Route: 048
     Dates: start: 20150814, end: 20150911
  63. PASTARON [Concomitant]
     Active Substance: UREA
     Indication: ACUTE LYMPHOCYTIC LEUKAEMIA RECURRENT
     Dosage: LOTION, Q.S
     Route: 061
     Dates: start: 20150830, end: 20150924
  64. FINIBAX [Concomitant]
     Active Substance: DORIPENEM MONOHYDRATE
     Indication: ACUTE LYMPHOCYTIC LEUKAEMIA RECURRENT
     Route: 041
     Dates: end: 20150815
  65. FINIBAX [Concomitant]
     Active Substance: DORIPENEM MONOHYDRATE
     Indication: ACUTE LYMPHOCYTIC LEUKAEMIA RECURRENT
     Route: 041
     Dates: start: 20150907, end: 20150907
  66. MINOCYCLINE [Concomitant]
     Active Substance: MINOCYCLINE\MINOCYCLINE HYDROCHLORIDE
     Indication: ACUTE LYMPHOCYTIC LEUKAEMIA RECURRENT
     Route: 041
     Dates: end: 20150815
  67. SAXIZON [Concomitant]
     Active Substance: HYDROCORTISONE SODIUM SUCCINATE
     Indication: ACUTE LYMPHOCYTIC LEUKAEMIA RECURRENT
     Dosage: 5 DAYS PER WEEK
     Route: 042
     Dates: start: 20150904, end: 20151012
  68. SULFAMETHOXAZOLE AND TRIMETHOPRIM [Concomitant]
     Active Substance: SULFAMETHOXAZOLE\TRIMETHOPRIM
     Indication: ACUTE LYMPHOCYTIC LEUKAEMIA RECURRENT
     Route: 048
     Dates: start: 20150901, end: 20150901
  69. NEO-MINOPHAGEN C [Concomitant]
     Active Substance: AMMONIUM GLYCYRRHIZATE
     Indication: ACUTE LYMPHOCYTIC LEUKAEMIA RECURRENT
     Dosage: 3 DAYS PER WEEK
     Route: 042
     Dates: start: 20150817, end: 20150906
  70. OXYCONTIN [Concomitant]
     Active Substance: OXYCODONE HYDROCHLORIDE
  71. BROCIN-CODEINE [Concomitant]
     Dosage: BROCIN-CODEINE COMBINATION SYRUP, CONC
  72. DROTEBANOL [Concomitant]
  73. BROMHEXINE HYDROCHLORIDE [Concomitant]
     Active Substance: BROMHEXINE HYDROCHLORIDE
     Route: 055
  74. SANMEL [Concomitant]
     Dosage: SOLUTION
     Route: 048
  75. MAGLAX [Concomitant]
     Active Substance: MAGNESIUM OXIDE
  76. PACIL [Concomitant]
     Route: 041
  77. FUNGUARD [Concomitant]
     Active Substance: MICAFUNGIN SODIUM
     Route: 041
  78. MIDAZOLAM [Concomitant]
     Active Substance: MIDAZOLAM\MIDAZOLAM HYDROCHLORIDE
  79. LOXOPROFEN NA [Concomitant]
     Active Substance: LOXOPROFEN SODIUM
     Indication: ACUTE LYMPHOCYTIC LEUKAEMIA RECURRENT
     Route: 048
     Dates: start: 20150830, end: 20150914
  80. REBAMIPIDE [Concomitant]
     Active Substance: REBAMIPIDE
     Route: 048
     Dates: start: 20150830, end: 20150914
  81. DEXART [Concomitant]
     Active Substance: DEXAMETHASONE SODIUM PHOSPHATE
     Indication: ACUTE LYMPHOCYTIC LEUKAEMIA RECURRENT
     Route: 042
     Dates: end: 20150818
  82. K-SUPPLY [Concomitant]
     Active Substance: POTASSIUM CHLORIDE
     Indication: ACUTE LYMPHOCYTIC LEUKAEMIA RECURRENT
     Route: 048
     Dates: start: 20150901, end: 20150909
  83. FILGRASTIM [Concomitant]
     Active Substance: FILGRASTIM
     Indication: ACUTE LYMPHOCYTIC LEUKAEMIA RECURRENT
     Route: 058
     Dates: start: 20150825, end: 20150827
  84. ROPION [Concomitant]
     Active Substance: FLURBIPROFEN AXETIL
     Indication: ACUTE LYMPHOCYTIC LEUKAEMIA RECURRENT
     Route: 042
     Dates: start: 20150831, end: 20150901
  85. OXYCONTIN [Concomitant]
     Active Substance: OXYCODONE HYDROCHLORIDE
  86. LOPEMIN [Concomitant]
     Active Substance: LOPERAMIDE HYDROCHLORIDE
  87. ELNEOPA NO 1 [Concomitant]
  88. LASIX [Suspect]
     Active Substance: FUROSEMIDE
     Indication: URINE OUTPUT
     Dosage: DOSE: 10-20 MG/ BODY
     Route: 042
     Dates: start: 20150925, end: 20151006
  89. POSTERISAN FORTE [Concomitant]
     Active Substance: LIDOCAINE
     Indication: ACUTE LYMPHOCYTIC LEUKAEMIA RECURRENT
     Route: 061
     Dates: start: 20150824, end: 20150914
  90. SODIUM CHLORIDE. [Concomitant]
     Active Substance: SODIUM CHLORIDE
     Indication: ACUTE LYMPHOCYTIC LEUKAEMIA RECURRENT
     Dosage: FREQUENCY: Q4W
     Route: 055
     Dates: start: 20150831, end: 20150929
  91. SODIUM CHLORIDE. [Concomitant]
     Active Substance: SODIUM CHLORIDE
     Indication: ACUTE LYMPHOCYTIC LEUKAEMIA RECURRENT
     Route: 042
     Dates: start: 20150814, end: 20150818
  92. BENAMBAX [Concomitant]
     Active Substance: PENTAMIDINE
     Indication: ACUTE LYMPHOCYTIC LEUKAEMIA RECURRENT
     Dosage: Q4W
     Route: 055
     Dates: start: 20150831, end: 20150929
  93. FINIBAX [Concomitant]
     Active Substance: DORIPENEM MONOHYDRATE
     Indication: ACUTE LYMPHOCYTIC LEUKAEMIA RECURRENT
     Route: 041
     Dates: start: 20150827, end: 20150904
  94. CARBOHYDRATES NOS/SODIUM LACTATE/SODIUM CHLORIDE/POTASSIUM CHLORIDE [Concomitant]
     Indication: ACUTE LYMPHOCYTIC LEUKAEMIA RECURRENT
     Route: 042
     Dates: start: 20150902, end: 20150925
  95. RASURITEK [Concomitant]
     Active Substance: RASBURICASE
     Indication: ACUTE LYMPHOCYTIC LEUKAEMIA RECURRENT
     Route: 042
     Dates: start: 20150814, end: 20150814
  96. SAXIZON [Concomitant]
     Active Substance: HYDROCORTISONE SODIUM SUCCINATE
     Indication: ACUTE LYMPHOCYTIC LEUKAEMIA RECURRENT
     Route: 042
     Dates: start: 20150814, end: 20150818
  97. HIRUDOID [Concomitant]
     Active Substance: GLYCOSAMINOGLYCANS
     Dosage: HIRUDOID LOTION
  98. TAKECAB [Concomitant]
     Active Substance: VONOPRAZAN FUMURATE
  99. BFLUID [Concomitant]
     Active Substance: AMINO ACIDS\DEXTROSE\ELECTROLYTES NOS\VITAMINS
  100. EVOLTRA [Suspect]
     Active Substance: CLOFARABINE
     Indication: ACUTE LYMPHOCYTIC LEUKAEMIA RECURRENT
     Route: 042
     Dates: start: 20150902, end: 20150906
  101. LASIX [Suspect]
     Active Substance: FUROSEMIDE
     Indication: URINE OUTPUT
     Route: 042
     Dates: start: 20150901, end: 20150920
  102. LASIX [Suspect]
     Active Substance: FUROSEMIDE
     Indication: OEDEMA
     Route: 042
     Dates: start: 20150905, end: 20150912
  103. LASIX [Suspect]
     Active Substance: FUROSEMIDE
     Indication: OEDEMA
     Dosage: DOSE: 10-20 MG/ BODY
     Route: 042
     Dates: start: 20151009, end: 20151012
  104. LASIX [Suspect]
     Active Substance: FUROSEMIDE
     Indication: URINE OUTPUT
     Dosage: DOSE: 10-20 MG/ BODY
     Route: 042
     Dates: start: 20151009, end: 20151012
  105. SODIUM CHLORIDE. [Concomitant]
     Active Substance: SODIUM CHLORIDE
     Indication: ACUTE LYMPHOCYTIC LEUKAEMIA RECURRENT
     Route: 042
     Dates: end: 20150815
  106. GLUCOSE [Concomitant]
     Active Substance: DEXTROSE
     Indication: ACUTE LYMPHOCYTIC LEUKAEMIA RECURRENT
     Route: 042
     Dates: start: 20150907, end: 20150920
  107. ALOXI [Concomitant]
     Active Substance: PALONOSETRON HYDROCHLORIDE
     Indication: ACUTE LYMPHOCYTIC LEUKAEMIA RECURRENT
     Route: 041
     Dates: start: 20150814, end: 20150814
  108. ALOXI [Concomitant]
     Active Substance: PALONOSETRON HYDROCHLORIDE
     Indication: ACUTE LYMPHOCYTIC LEUKAEMIA RECURRENT
     Route: 041
     Dates: start: 20150902, end: 20150902
  109. VANCOMYCIN [Concomitant]
     Active Substance: VANCOMYCIN
     Indication: ACUTE LYMPHOCYTIC LEUKAEMIA RECURRENT
     Route: 041
     Dates: start: 20150830, end: 20150902
  110. OXINORM [Concomitant]
     Active Substance: OXYCODONE HYDROCHLORIDE
     Dosage: OXINORM POWDER
  111. TEICOPLANIN [Concomitant]
     Active Substance: TEICOPLANIN
     Route: 041
  112. CANCIDAS [Concomitant]
     Active Substance: CASPOFUNGIN ACETATE
     Route: 041
  113. KCL [Concomitant]
     Active Substance: POTASSIUM CHLORIDE
  114. ACELIO [Concomitant]
     Active Substance: ACETAMINOPHEN
     Route: 042
  115. OMEPRAL [Concomitant]
     Active Substance: OMEPRAZOLE
  116. EVOLTRA [Suspect]
     Active Substance: CLOFARABINE
     Indication: ACUTE LYMPHOCYTIC LEUKAEMIA RECURRENT
     Route: 042
     Dates: start: 20150917, end: 20150921
  117. ZOSYN [Suspect]
     Active Substance: PIPERACILLIN SODIUM\TAZOBACTAM SODIUM
     Route: 042
     Dates: start: 20150820, end: 20150826
  118. ZOSYN [Suspect]
     Active Substance: PIPERACILLIN SODIUM\TAZOBACTAM SODIUM
     Route: 042
     Dates: start: 20150923, end: 20150925
  119. METHYLPREDNISOLONE. [Suspect]
     Active Substance: METHYLPREDNISOLONE
     Indication: LUNG INFILTRATION
     Route: 042
     Dates: start: 20151009, end: 20151011
  120. DECADRON [Concomitant]
     Active Substance: DEXAMETHASONE
     Indication: ACUTE LYMPHOCYTIC LEUKAEMIA RECURRENT
     Route: 048
     Dates: end: 20150814
  121. FEBURIC [Concomitant]
     Active Substance: FEBUXOSTAT
     Indication: ACUTE LYMPHOCYTIC LEUKAEMIA RECURRENT
     Route: 048
     Dates: end: 20150830
  122. GLUCOSE [Concomitant]
     Active Substance: DEXTROSE
     Indication: ACUTE LYMPHOCYTIC LEUKAEMIA RECURRENT
     Route: 042
     Dates: start: 20150831, end: 20150920

REACTIONS (22)
  - Cardiac failure [Fatal]
  - Renal impairment [Recovered/Resolved]
  - Septic shock [Recovered/Resolved]
  - Platelet count decreased [Not Recovered/Not Resolved]
  - Oedema [Not Recovered/Not Resolved]
  - Hepatic function abnormal [Recovered/Resolved]
  - Skin striae [Recovering/Resolving]
  - Diarrhoea [Recovered/Resolved]
  - Hypokalaemia [Recovered/Resolved]
  - Hypocalcaemia [Recovered/Resolved]
  - Pyrexia [Unknown]
  - Abdominal pain [Unknown]
  - Diarrhoea [Recovered/Resolved]
  - Haemoglobin decreased [Not Recovered/Not Resolved]
  - Neutrophil count decreased [Not Recovered/Not Resolved]
  - Neutrophil count decreased [Recovered/Resolved]
  - Febrile neutropenia [Recovered/Resolved]
  - Hepatic failure [Fatal]
  - Hepatic function abnormal [Recovered/Resolved]
  - Pain [Unknown]
  - Proctalgia [Unknown]
  - Hypomagnesaemia [Recovered/Resolved]

NARRATIVE: CASE EVENT DATE: 20150815
